FAERS Safety Report 19285933 (Version 1)
Quarter: 2021Q2

REPORT INFORMATION
  Report Type: Spontaneous
  Country: US (occurrence: US)
  Receive Date: 20210521
  Receipt Date: 20210521
  Transmission Date: 20210717
  Serious: No
  Sender: FDA-Public Use
  Company Number: US-RADIUS HEALTH INC.-2020US002578

PATIENT
  Sex: Female

DRUGS (4)
  1. ELIQUIS [Concomitant]
     Active Substance: APIXABAN
     Indication: ANTICOAGULANT THERAPY
     Dosage: 5 MG, BID
  2. SOTALOL. [Concomitant]
     Active Substance: SOTALOL
     Indication: HEART RATE
     Dosage: 80 MG, BID
  3. TYMLOS [Suspect]
     Active Substance: ABALOPARATIDE
     Dosage: 80MCG EVERY OTHER DAY FOR THREE DAYS
     Route: 058
     Dates: start: 202007, end: 202007
  4. TYMLOS [Suspect]
     Active Substance: ABALOPARATIDE
     Indication: OSTEOPOROSIS
     Dosage: 80 MCG, QD
     Route: 058
     Dates: start: 20200711

REACTIONS (3)
  - Pain in jaw [Not Recovered/Not Resolved]
  - Headache [Not Recovered/Not Resolved]
  - Ear disorder [Not Recovered/Not Resolved]
